FAERS Safety Report 11685448 (Version 1)
Quarter: 2015Q4

REPORT INFORMATION
  Report Type: Spontaneous
  Country: ES (occurrence: ES)
  Receive Date: 20151030
  Receipt Date: 20151030
  Transmission Date: 20160304
  Serious: Yes (Hospitalization)
  Sender: FDA-Public Use
  Company Number: ES-AMGEN-ESPSP2015113342

PATIENT
  Age: 29 Year
  Sex: Female

DRUGS (4)
  1. PREDNISONE. [Suspect]
     Active Substance: PREDNISONE
     Indication: PRODUCT USED FOR UNKNOWN INDICATION
     Dosage: 5 MG, UNK
     Route: 065
     Dates: start: 20150423
  2. ZEMPLAR [Concomitant]
     Active Substance: PARICALCITOL
     Indication: HAEMODIALYSIS
     Dosage: 1 MUG, UNK
     Route: 048
     Dates: start: 20150423
  3. MIMPARA [Suspect]
     Active Substance: CINACALCET HYDROCHLORIDE
     Indication: HAEMODIALYSIS
     Dosage: 30 MG, UNK
     Route: 048
     Dates: start: 20150423
  4. DAPSONA [Concomitant]
     Indication: DERMATITIS HERPETIFORMIS
     Dosage: 50 MG, UNK
     Dates: start: 201508, end: 20151015

REACTIONS (1)
  - Papilloedema [Not Recovered/Not Resolved]

NARRATIVE: CASE EVENT DATE: 20151013
